FAERS Safety Report 5807996-1 (Version None)
Quarter: 2008Q3

REPORT INFORMATION
  Report Type: 
  Country: None (occurrence: None)
  Receive Date: 20080711
  Receipt Date: 20080630
  Transmission Date: 20090109
  Serious: Yes (Other)
  Sender: FDA-Public Use
  Company Number: US-PFIZER INC-2008046909

PATIENT
  Sex: Female
  Weight: 76.2 kg

DRUGS (7)
  1. ALPRAZOLAM [Suspect]
     Indication: ANXIETY
     Route: 048
  2. AVAPRO [Concomitant]
  3. LEVOXYL [Concomitant]
  4. CALCIUM [Concomitant]
  5. VITAMIN D [Concomitant]
  6. MAGNESIUM [Concomitant]
  7. MULTI-VITAMINS [Concomitant]

REACTIONS (2)
  - HYPONATRAEMIA [None]
  - RENAL DISORDER [None]
